FAERS Safety Report 7700373-8 (Version None)
Quarter: 2011Q3

REPORT INFORMATION
  Report Type: 
  Country: None (occurrence: None)
  Receive Date: 20110822
  Receipt Date: 20110809
  Transmission Date: 20111222
  Serious: Yes (Hospitalization)
  Sender: FDA-Public Use
  Company Number: US-ELI_LILLY_AND_COMPANY-US201108000740

PATIENT
  Sex: Female

DRUGS (12)
  1. PLAVIX [Concomitant]
     Dosage: 75 MG, QD
  2. CALCIUM W/VITAMINS NOS [Concomitant]
     Dosage: UNK, QD
  3. ZINC [Concomitant]
  4. CALCIUM WITH VITAMIN D [Concomitant]
  5. LISINOPRIL [Concomitant]
     Indication: BLOOD PRESSURE
     Dosage: 20 MG, QD
  6. FORTEO [Suspect]
     Indication: OSTEOPOROSIS
     Dosage: 20 UG, QD
  7. FORTEO [Suspect]
     Dosage: 20 UG, QD
  8. DILTIAZEM [Concomitant]
     Indication: BLOOD PRESSURE
     Dosage: 100 MG, EACH EVENING
  9. VITAMIN D [Concomitant]
     Dosage: 1000 IU, QD
  10. ASPIRIN [Concomitant]
     Dosage: 81 MG, QD
  11. FORTEO [Suspect]
     Dosage: 20 UG, QD
     Dates: end: 20110701
  12. FERROUS SULFATE TAB [Concomitant]

REACTIONS (7)
  - MEMORY IMPAIRMENT [None]
  - SENSORY DISTURBANCE [None]
  - ASTHENIA [None]
  - ANAEMIA [None]
  - SPIDER VEIN [None]
  - DECREASED APPETITE [None]
  - CONSTIPATION [None]
